FAERS Safety Report 19096316 (Version 1)
Quarter: 2021Q2

REPORT INFORMATION
  Report Type: Spontaneous
  Country: US (occurrence: US)
  Receive Date: 20210405
  Receipt Date: 20210405
  Transmission Date: 20210717
  Serious: Yes (Hospitalization)
  Sender: FDA-Public Use
  Company Number: None

PATIENT
  Age: 59 Year
  Sex: Female

DRUGS (5)
  1. PANTOPRAZOLE [Concomitant]
     Active Substance: PANTOPRAZOLE
  2. ENBREL [Suspect]
     Active Substance: ETANERCEPT
     Indication: RHEUMATOID ARTHRITIS
     Dosage: ?          OTHER FREQUENCY:ONCE A WEEK;?
     Route: 058
  3. DICLOFENAC [Concomitant]
     Active Substance: DICLOFENAC
  4. VITAMIN D [Concomitant]
     Active Substance: VITAMIN D NOS
  5. PREDNISONE. [Concomitant]
     Active Substance: PREDNISONE

REACTIONS (4)
  - Pain [None]
  - COVID-19 [None]
  - Pneumonia [None]
  - Intentional dose omission [None]
